FAERS Safety Report 6772179-8 (Version None)
Quarter: 2010Q2

REPORT INFORMATION
  Report Type: 
  Country: None (occurrence: None)
  Receive Date: 20100616
  Receipt Date: 20100607
  Transmission Date: 20101027
  Serious: Yes (Other)
  Sender: FDA-Public Use
  Company Number: PHHY2010CN20269

PATIENT
  Age: 2 Year

DRUGS (1)
  1. SEBIVO [Suspect]
     Dosage: 1 TABLET
     Dates: start: 20100331

REACTIONS (1)
  - INTENTIONAL DRUG MISUSE [None]
